FAERS Safety Report 4656378-7 (Version None)
Quarter: 2005Q2

REPORT INFORMATION
  Report Type: 
  Country: None (occurrence: None)
  Receive Date: 20050509
  Receipt Date: 20050422
  Transmission Date: 20051028
  Serious: Yes (Other)
  Sender: FDA-Public Use
  Company Number: ES-MERCK-0504ESP00044

PATIENT
  Age: 53 Year
  Sex: Male

DRUGS (1)
  1. EZETIMIBE [Suspect]
     Indication: HYPERCHOLESTEROLAEMIA
     Route: 048
     Dates: start: 20040801

REACTIONS (4)
  - ASTHENIA [None]
  - ERECTILE DYSFUNCTION [None]
  - INSOMNIA [None]
  - MYOPATHY [None]
